FAERS Safety Report 6264132-8 (Version None)
Quarter: 2009Q3

REPORT INFORMATION
  Report Type: 
  Country: None (occurrence: None)
  Receive Date: 20090710
  Receipt Date: 20090629
  Transmission Date: 20100115
  Serious: Yes (Hospitalization, Other)
  Sender: FDA-Public Use
  Company Number: JP-PFIZER INC-2009235178

PATIENT
  Age: 66 Year

DRUGS (2)
  1. UNASYN [Suspect]
     Indication: PNEUMONIA ASPIRATION
     Dosage: UNK
     Route: 042
     Dates: start: 20090623, end: 20090624
  2. SITAFLOXACIN [Suspect]
     Indication: PNEUMONIA ASPIRATION
     Dosage: 50 MG, 2X/DAY
     Route: 048
     Dates: start: 20090623, end: 20090625

REACTIONS (1)
  - RHABDOMYOLYSIS [None]
